FAERS Safety Report 9896560 (Version 1)
Quarter: 2014Q1

REPORT INFORMATION
  Report Type: Spontaneous
  Country: US (occurrence: US)
  Receive Date: 20140213
  Receipt Date: 20140213
  Transmission Date: 20141002
  Serious: No
  Sender: FDA-Public Use
  Company Number: US-BRISTOL-MYERS SQUIBB COMPANY-19106160

PATIENT
  Age: 62 Year
  Sex: Female
  Weight: 68.93 kg

DRUGS (8)
  1. ABATACEPT SUBQ INJECTION 125MG/ML [Suspect]
     Dosage: ORENCIA 125MG/ML PFS (4 PACK)
     Route: 058
  2. AMLODIPINE [Concomitant]
     Dosage: TABS
  3. MINIPRESS [Concomitant]
     Dosage: CAPS
  4. ATENOLOL [Concomitant]
     Dosage: TABS
  5. QUINAPRIL [Concomitant]
     Dosage: TABS
  6. TENORMIN [Concomitant]
     Dosage: TABS
  7. CRESTOR [Concomitant]
     Dosage: TABS
  8. POTASSIUM CHLORIDE [Concomitant]
     Dosage: 1DF:CAP 10 MEQ CR.

REACTIONS (2)
  - Drug ineffective [Unknown]
  - Injection site erythema [Unknown]
